FAERS Safety Report 4320060-6 (Version None)
Quarter: 2004Q1

REPORT INFORMATION
  Report Type: 
  Country: None (occurrence: None)
  Receive Date: 20040315
  Receipt Date: 20040115
  Transmission Date: 20041129
  Serious: No
  Sender: FDA-Public Use
  Company Number: 2004194798US

PATIENT
  Age: 45 Year
  Sex: Female

DRUGS (2)
  1. BEXTRA [Suspect]
     Indication: KNEE OPERATION
     Dosage: 20 MG, QD,
     Dates: start: 20031201, end: 20040113
  2. PREMARIN [Concomitant]

REACTIONS (2)
  - ERYTHEMA [None]
  - MOUTH ULCERATION [None]
